FAERS Safety Report 5924730-5 (Version None)
Quarter: 2008Q4

REPORT INFORMATION
  Report Type: 
  Country: None (occurrence: None)
  Receive Date: 20081016
  Receipt Date: 20081008
  Transmission Date: 20090506
  Serious: Yes (Hospitalization)
  Sender: FDA-Public Use
  Company Number: TPA2008A01549

PATIENT
  Age: 53 Year
  Sex: Female
  Weight: 66.2252 kg

DRUGS (6)
  1. PIOGLITAZONE HCL [Suspect]
     Indication: CARDIOVASCULAR EVENT PROPHYLAXIS
     Dosage: 1 IN 1 D, PER ORAL
     Route: 048
     Dates: start: 20071003
  2. LEXAPRO [Concomitant]
  3. PROVASTATIN (PRAVASTATIN) [Concomitant]
  4. ADVAIR DISKUS 100/50 [Concomitant]
  5. BENAZEPRIL (BENAZEPRIL) [Concomitant]
  6. AGGRENOX [Concomitant]

REACTIONS (4)
  - FALL [None]
  - OSTEOPENIA [None]
  - RADIUS FRACTURE [None]
  - ULNA FRACTURE [None]
